FAERS Safety Report 6593979-3 (Version None)
Quarter: 2010Q1

REPORT INFORMATION
  Report Type: 
  Country: None (occurrence: None)
  Receive Date: 20100222
  Receipt Date: 20100217
  Transmission Date: 20100710
  Serious: Yes (Other)
  Sender: FDA-Public Use
  Company Number: GB-TEVA-223120ISR

PATIENT
  Age: 20 Year
  Sex: Female
  Weight: 92 kg

DRUGS (3)
  1. CITALOPRAM HYDROBROMIDE [Suspect]
     Indication: OBSESSIVE-COMPULSIVE DISORDER
  2. CLOZAPINE [Interacting]
     Indication: SCHIZOPHRENIA
     Dates: start: 20090401
  3. CLOZAPINE [Interacting]
     Dates: start: 20100115

REACTIONS (7)
  - ANTIPSYCHOTIC DRUG LEVEL INCREASED [None]
  - ANXIETY [None]
  - DRUG INTERACTION [None]
  - HYPOCHONDRIASIS [None]
  - IMPULSIVE BEHAVIOUR [None]
  - OBSESSIVE-COMPULSIVE DISORDER [None]
  - REPETITIVE SPEECH [None]
